FAERS Safety Report 13567102 (Version 1)
Quarter: 2017Q2

REPORT INFORMATION
  Report Type: Spontaneous
  Country: US (occurrence: US)
  Receive Date: 20170521
  Receipt Date: 20170521
  Transmission Date: 20170830
  Serious: Yes (Disabling)
  Sender: FDA-Public Use
  Company Number: None

PATIENT
  Age: 68 Year
  Sex: Female
  Weight: 81.9 kg

DRUGS (11)
  1. LEVOTHYROXINE. [Concomitant]
     Active Substance: LEVOTHYROXINE
  2. CALCIUM [Concomitant]
     Active Substance: CALCIUM
  3. SYSTANE EYEDROPS [Concomitant]
     Active Substance: POLYETHYLENE GLYCOL 400\PROPYLENE GLYCOL
  4. LACTASE [Concomitant]
     Active Substance: LACTASE
  5. TYLENOL [Concomitant]
     Active Substance: ACETAMINOPHEN
  6. FISH OIL [Concomitant]
     Active Substance: FISH OIL
  7. SACCHAROMYCES BOULARDII [Concomitant]
     Active Substance: SACCHAROMYCES CEREVISIAE
  8. ZYRTEC [Concomitant]
     Active Substance: CETIRIZINE HYDROCHLORIDE
  9. ALEVE [Concomitant]
     Active Substance: NAPROXEN SODIUM
  10. DICLOFENAC SODIUM. [Suspect]
     Active Substance: DICLOFENAC SODIUM
     Indication: ARTHRITIS
     Dosage: ?          QUANTITY:1 TABLET(S);?
     Route: 048
     Dates: start: 20170517, end: 20170520
  11. CENTRUM SILVER MULTIVITAMIN [Concomitant]

REACTIONS (4)
  - Dizziness [None]
  - Gastrointestinal pain [None]
  - Diarrhoea [None]
  - Gait disturbance [None]

NARRATIVE: CASE EVENT DATE: 20170517
